FAERS Safety Report 23125086 (Version 1)
Quarter: 2023Q4

REPORT INFORMATION
  Report Type: Spontaneous
  Country: FR (occurrence: FR)
  Receive Date: 20231030
  Receipt Date: 20231030
  Transmission Date: 20240110
  Serious: Yes (Other)
  Sender: FDA-Public Use
  Company Number: None

PATIENT
  Age: 22 Year
  Sex: Female

DRUGS (3)
  1. PROPOFOL [Suspect]
     Active Substance: PROPOFOL
     Indication: Induction of anaesthesia
     Dosage: ROA-20045000
     Route: 042
     Dates: start: 20220104, end: 20220104
  2. SUFENTANIL [Suspect]
     Active Substance: SUFENTANIL
     Indication: Induction of anaesthesia
     Dosage: ROA-20045000
     Route: 042
     Dates: start: 20220104, end: 20220104
  3. ATRACURIUM [Suspect]
     Active Substance: ATRACURIUM
     Indication: Induction of anaesthesia
     Dosage: ROA-20045000
     Route: 042
     Dates: start: 20220104, end: 20220104

REACTIONS (1)
  - Anaphylactic reaction [Recovered/Resolved]

NARRATIVE: CASE EVENT DATE: 20220104
